FAERS Safety Report 14761791 (Version 4)
Quarter: 2018Q3

REPORT INFORMATION
  Report Type: Spontaneous
  Country: US (occurrence: US)
  Receive Date: 20180416
  Receipt Date: 20180704
  Transmission Date: 20181010
  Serious: Yes (Hospitalization, Other)
  Sender: FDA-Public Use
  Company Number: US-ROCHE-2105493

PATIENT
  Age: 73 Year
  Sex: Female

DRUGS (2)
  1. FOSAMAX [Suspect]
     Active Substance: ALENDRONATE SODIUM
     Indication: OSTEOPOROSIS
     Route: 065
  2. BONIVA [Suspect]
     Active Substance: IBANDRONATE SODIUM
     Indication: OSTEOPOROSIS
     Route: 048
     Dates: start: 201012

REACTIONS (10)
  - Anxiety [Unknown]
  - Rhinalgia [Unknown]
  - Dysuria [Unknown]
  - Large intestine polyp [Unknown]
  - Wound necrosis [Unknown]
  - Pain in jaw [Unknown]
  - Neoplasm [Unknown]
  - Pulmonary mass [Unknown]
  - Osteonecrosis of jaw [Unknown]
  - Bronchitis [Unknown]

NARRATIVE: CASE EVENT DATE: 20120709
